FAERS Safety Report 16842781 (Version 1)
Quarter: 2019Q3

REPORT INFORMATION
  Report Type: Report from Study
  Country: AU (occurrence: AU)
  Receive Date: 20190924
  Receipt Date: 20190924
  Transmission Date: 20191005
  Serious: Yes (Other)
  Sender: FDA-Public Use
  Company Number: AU-ROCHE-2410732

PATIENT

DRUGS (1)
  1. RITUXIMAB. [Suspect]
     Active Substance: RITUXIMAB
     Indication: SYSTEMIC LUPUS ERYTHEMATOSUS
     Dosage: DAYS 1 AND 15
     Route: 042

REACTIONS (16)
  - Hypoxia [Unknown]
  - Nausea [Unknown]
  - Urinary tract infection [Unknown]
  - Bronchospasm [Unknown]
  - Urticaria [Unknown]
  - Chest discomfort [Unknown]
  - Back pain [Unknown]
  - Hypertension [Unknown]
  - Throat tightness [Unknown]
  - Rash [Unknown]
  - Flushing [Unknown]
  - Pruritus generalised [Unknown]
  - Pyrexia [Unknown]
  - Wheezing [Unknown]
  - Dyspnoea [Unknown]
  - Vomiting [Unknown]
